FAERS Safety Report 6831103-X (Version None)
Quarter: 2010Q3

REPORT INFORMATION
  Report Type: 
  Country: None (occurrence: None)
  Receive Date: 20100712
  Receipt Date: 20100630
  Transmission Date: 20110219
  Serious: Yes (Hospitalization, Disabling)
  Sender: FDA-Public Use
  Company Number: JP-BAYER-201012635BYL

PATIENT
  Age: 47 Year
  Sex: Female
  Weight: 48 kg

DRUGS (9)
  1. BETAFERON [Suspect]
     Indication: MULTIPLE SCLEROSIS
     Dosage: TOTAL DAILY DOSE: 8 MIU
     Route: 059
     Dates: start: 20010501
  2. TAKEPRON [Concomitant]
     Route: 048
  3. ALFAROL [Concomitant]
     Route: 048
  4. SELBEX [Concomitant]
     Route: 048
  5. DEPAS [Concomitant]
     Route: 048
  6. ADETPHOS [Concomitant]
     Route: 048
  7. MERISLON [Concomitant]
     Route: 048
  8. RIKKUNSHI-TO [Concomitant]
     Route: 048
  9. METHYCOBAL [Concomitant]
     Route: 048

REACTIONS (1)
  - MERALGIA PARAESTHETICA [None]
